FAERS Safety Report 16797062 (Version 13)
Quarter: 2020Q3

REPORT INFORMATION
  Report Type: Report from Study
  Country: BR (occurrence: BR)
  Receive Date: 20190911
  Receipt Date: 20200930
  Transmission Date: 20201102
  Serious: Yes (Other)
  Sender: FDA-Public Use
  Company Number: PHHY2018BR012602

PATIENT
  Age: 15 Year
  Sex: Male
  Weight: 59 kg

DRUGS (6)
  1. SAIZEN [Concomitant]
     Active Substance: SOMATROPIN
     Indication: PRODUCT USED FOR UNKNOWN INDICATION
     Route: 065
  2. OMNITROPE [Suspect]
     Active Substance: SOMATROPIN
     Dosage: 2.5 MG, QD
     Route: 058
     Dates: start: 20180524
  3. OMNITROPE [Suspect]
     Active Substance: SOMATROPIN
     Dosage: 3.2 MG, QD
     Route: 058
     Dates: start: 201901
  4. OMNITROPE [Suspect]
     Active Substance: SOMATROPIN
     Indication: GROWTH HORMONE DEFICIENCY
     Dosage: UNK
     Route: 058
     Dates: start: 201803
  5. OMNITROPE [Suspect]
     Active Substance: SOMATROPIN
     Dosage: 3.8 MG, QD (CONCENTRATION: 15 MG)
     Route: 058
  6. OMNITROPE [Suspect]
     Active Substance: SOMATROPIN
     Dosage: 3.5 MG, QD
     Route: 058

REACTIONS (14)
  - Product use complaint [Unknown]
  - Drug ineffective [Unknown]
  - Lymphoma [Unknown]
  - Wrong technique in product usage process [Unknown]
  - Needle issue [Unknown]
  - Product administration error [Unknown]
  - Nervousness [Unknown]
  - Incorrect dose administered [Unknown]
  - Product packaging issue [Unknown]
  - Fear of injection [Unknown]
  - Wrong technique in device usage process [Unknown]
  - Device leakage [Unknown]
  - Product packaging quantity issue [Unknown]
  - Injection site pain [Unknown]

NARRATIVE: CASE EVENT DATE: 201805
